FAERS Safety Report 21278927 (Version 1)
Quarter: 2022Q3

REPORT INFORMATION
  Report Type: Spontaneous
  Country: US (occurrence: US)
  Receive Date: 20220901
  Receipt Date: 20220901
  Transmission Date: 20221027
  Serious: No
  Sender: FDA-Public Use
  Company Number: US-TEVA-2022-US-2065478

PATIENT
  Age: 23 Year
  Sex: Female

DRUGS (1)
  1. TRI-SPRINTEC [Suspect]
     Active Substance: ETHINYL ESTRADIOL\NORGESTIMATE
     Indication: Product used for unknown indication
     Route: 065
     Dates: start: 202207

REACTIONS (3)
  - Nausea [Unknown]
  - Vomiting [Unknown]
  - Gluten sensitivity [Unknown]

NARRATIVE: CASE EVENT DATE: 20220701
